FAERS Safety Report 4976145-4 (Version None)
Quarter: 2006Q2

REPORT INFORMATION
  Report Type: 
  Country: None (occurrence: None)
  Receive Date: 20060411
  Receipt Date: 20060406
  Transmission Date: 20061013
  Serious: Yes (Hospitalization, Other)
  Sender: FDA-Public Use
  Company Number: 200611401GDS

PATIENT
  Age: 66 Year
  Sex: Male

DRUGS (7)
  1. CIPROFLOXACIN [Suspect]
     Indication: ANTIBIOTIC PROPHYLAXIS
  2. MELPHALAN [Concomitant]
  3. PENICILLIN [Concomitant]
  4. AMPHOTERICIN B [Concomitant]
  5. VANCOMYCIN [Concomitant]
  6. CEFTAZIDIME [Concomitant]
  7. VORICONAZOLE [Concomitant]

REACTIONS (7)
  - ACUTE RESPIRATORY DISTRESS SYNDROME [None]
  - COLITIS PSEUDOMEMBRANOUS [None]
  - GENERAL PHYSICAL HEALTH DETERIORATION [None]
  - HAEMODYNAMIC INSTABILITY [None]
  - NEUTROPENIA [None]
  - RESPIRATORY FAILURE [None]
  - SEPTIC SHOCK [None]
